FAERS Safety Report 9182480 (Version 1)
Quarter: 2013Q1

REPORT INFORMATION
  Report Type: Spontaneous
  Country: US (occurrence: US)
  Receive Date: 20130322
  Receipt Date: 20130322
  Transmission Date: 20140127
  Serious: No
  Sender: FDA-Public Use
  Company Number: US-BRISTOL-MYERS SQUIBB COMPANY-16770869

PATIENT
  Age: 53 Year
  Sex: Female
  Weight: 52.02 kg

DRUGS (2)
  1. ERBITUX [Suspect]
     Indication: METASTASES TO LIVER
     Dosage: WT PRIOR TO ERBITUX: 125LBS.?WT PRIOR TO CANCER DIAGNOSIS: 145 LBS?CURRENT WT: 114.7 LBS
     Dates: start: 201205
  2. ERBITUX [Suspect]
     Indication: COLORECTAL CANCER STAGE IV
     Dosage: WT PRIOR TO ERBITUX: 125LBS.?WT PRIOR TO CANCER DIAGNOSIS: 145 LBS?CURRENT WT: 114.7 LBS
     Dates: start: 201205

REACTIONS (4)
  - Rash [Not Recovered/Not Resolved]
  - Dry skin [Not Recovered/Not Resolved]
  - Scab [Not Recovered/Not Resolved]
  - Weight decreased [Not Recovered/Not Resolved]
